FAERS Safety Report 24220608 (Version 1)
Quarter: 2024Q3

REPORT INFORMATION
  Report Type: Report from Study
  Country: US (occurrence: None)
  Receive Date: 20240818
  Receipt Date: 20240818
  Transmission Date: 20241017
  Serious: Yes (Hospitalization)
  Sender: ASTRAZENECA
  Company Number: 2023A180712

PATIENT
  Sex: Female
  Weight: 36.3 kg

DRUGS (1)
  1. SYMBICORT [Suspect]
     Active Substance: BUDESONIDE\FORMOTEROL FUMARATE DIHYDRATE
     Indication: Cardiac failure congestive
     Dosage: 160/4.5 1 /EVERY 12 HOURS
     Route: 055
     Dates: start: 20200730

REACTIONS (1)
  - Cardiac failure congestive [Recovered/Resolved]
